FAERS Safety Report 14457090 (Version 1)
Quarter: 2018Q1

REPORT INFORMATION
  Report Type: Spontaneous
  Country: FR (occurrence: FR)
  Receive Date: 20180130
  Receipt Date: 20180130
  Transmission Date: 20180509
  Serious: Yes (Hospitalization)
  Sender: FDA-Public Use
  Company Number: FR-ASTRAZENECA-2018SE09428

PATIENT
  Age: 84 Year
  Sex: Male
  Weight: 65 kg

DRUGS (1)
  1. BRILIQUE [Suspect]
     Active Substance: TICAGRELOR
     Indication: ACUTE CORONARY SYNDROME
     Route: 048
     Dates: start: 20180112, end: 20180113

REACTIONS (2)
  - Dyspnoea [Recovered/Resolved]
  - Orthopnoea [Recovered/Resolved]

NARRATIVE: CASE EVENT DATE: 20180112
